FAERS Safety Report 10343943 (Version 1)
Quarter: 2014Q3

REPORT INFORMATION
  Report Type: Spontaneous
  Country: DE (occurrence: DE)
  Receive Date: 20140727
  Receipt Date: 20140727
  Transmission Date: 20150326
  Serious: Yes (Hospitalization)
  Sender: FDA-Public Use
  Company Number: GXKR2014DE002721

PATIENT
  Age: 39 Year
  Sex: Female
  Weight: 58 kg

DRUGS (1)
  1. ANTIFUNGOL (CLOTRIMAZOLE) [Suspect]
     Active Substance: CLOTRIMAZOLE
     Dosage: 200 MG, ONCE/SINGLE
     Route: 067
     Dates: start: 20140411, end: 20140411

REACTIONS (6)
  - Grimacing [Not Recovered/Not Resolved]
  - Pharyngeal oedema [Not Recovered/Not Resolved]
  - Pruritus generalised [None]
  - Rash macular [Not Recovered/Not Resolved]
  - Pruritus [Not Recovered/Not Resolved]
  - Peripheral swelling [Not Recovered/Not Resolved]
